FAERS Safety Report 18415019 (Version 1)
Quarter: 2020Q4

REPORT INFORMATION
  Report Type: Spontaneous
  Country: US (occurrence: US)
  Receive Date: 20201022
  Receipt Date: 20201022
  Transmission Date: 20210114
  Serious: No
  Sender: FDA-Public Use
  Company Number: None

PATIENT
  Age: 73 Year
  Sex: Female
  Weight: 83.25 kg

DRUGS (13)
  1. HYDROXYUREA. [Suspect]
     Active Substance: HYDROXYUREA
     Indication: ESSENTIAL THROMBOCYTHAEMIA
     Route: 048
     Dates: start: 20200901
  2. MULTIVITAMIN [Concomitant]
     Active Substance: VITAMINS
  3. TRAVOPROST 0.004% [Concomitant]
     Active Substance: TRAVOPROST
  4. ANASTROZOLE 1MG [Concomitant]
     Active Substance: ANASTROZOLE
  5. TIMOLOL MALEATE 0.5% [Concomitant]
     Active Substance: TIMOLOL MALEATE
  6. SIMVASTATIN 20MG [Concomitant]
     Active Substance: SIMVASTATIN
  7. RESTASIS [Concomitant]
     Active Substance: CYCLOSPORINE
  8. MELATONIN 3MG [Concomitant]
  9. LEVOTHYROXINE 100MCG [Concomitant]
     Active Substance: LEVOTHYROXINE
  10. LANSOPRAZOLE 30MG [Concomitant]
     Active Substance: LANSOPRAZOLE
  11. VITAMIN D 1.25MG [Concomitant]
  12. ASPIRIN 81MG [Concomitant]
     Active Substance: ASPIRIN
  13. AMLODIPINE [Concomitant]
     Active Substance: AMLODIPINE BESYLATE

REACTIONS (2)
  - Fatigue [None]
  - Lip dry [None]

NARRATIVE: CASE EVENT DATE: 20201022
